FAERS Safety Report 18010224 (Version 1)
Quarter: 2020Q3

REPORT INFORMATION
  Report Type: Report from Study
  Country: EG (occurrence: EG)
  Receive Date: 20200710
  Receipt Date: 20200710
  Transmission Date: 20201103
  Serious: Yes (Hospitalization, Other)
  Sender: FDA-Public Use
  Company Number: NVSC2020EG193926

PATIENT
  Age: 27 Year
  Sex: Female

DRUGS (4)
  1. GLIVEC [Suspect]
     Active Substance: IMATINIB MESYLATE
     Indication: CHRONIC MYELOID LEUKAEMIA
     Dosage: 400 MG, QD (STARTED 10 YEARS AGO AND STOPPED 8 YEARS AGO))
     Route: 065
  2. GLIVEC [Suspect]
     Active Substance: IMATINIB MESYLATE
     Dosage: 400 MG, QD
     Route: 065
     Dates: end: 2013
  3. GLIVEC [Suspect]
     Active Substance: IMATINIB MESYLATE
     Dosage: 800 MG, QD (FOR 3 MONTHS)
     Route: 065
     Dates: start: 2015, end: 201906
  4. TASIGNA [Suspect]
     Active Substance: NILOTINIB
     Indication: CHRONIC MYELOID LEUKAEMIA
     Dosage: 4 DF (800 MG), QD (STARTED 3 TO 4 MONTHS AGO)
     Route: 065

REACTIONS (9)
  - Laziness [Recovered/Resolved]
  - Amenorrhoea [Recovered/Resolved]
  - Splenomegaly [Not Recovered/Not Resolved]
  - Full blood count abnormal [Unknown]
  - Dizziness [Recovered/Resolved]
  - Cytogenetic analysis abnormal [Not Recovered/Not Resolved]
  - Drug resistance [Not Recovered/Not Resolved]
  - Splenomegaly [Recovered/Resolved]
  - Anaemia [Recovered/Resolved]

NARRATIVE: CASE EVENT DATE: 2015
